FAERS Safety Report 7370675-6 (Version None)
Quarter: 2011Q1

REPORT INFORMATION
  Report Type: 
  Country: None (occurrence: None)
  Receive Date: 20110323
  Receipt Date: 20110305
  Transmission Date: 20110831
  Serious: No
  Sender: FDA-Public Use
  Company Number: US-BAYER-2011-021369

PATIENT
  Sex: Female

DRUGS (3)
  1. CLINDAMYCIN [Concomitant]
  2. ALEVE [Suspect]
     Indication: TOOTHACHE
     Dosage: 4 DF, UNK
     Route: 048
     Dates: start: 20110305
  3. IBUPROFEN [Concomitant]

REACTIONS (1)
  - NO ADVERSE EVENT [None]
